FAERS Safety Report 4742615-7 (Version None)
Quarter: 2005Q3

REPORT INFORMATION
  Report Type: 
  Country: None (occurrence: None)
  Receive Date: 20050808
  Receipt Date: 20050722
  Transmission Date: 20060218
  Serious: Yes (Death, Hospitalization, Other)
  Sender: FDA-Public Use
  Company Number: USA0506100222

PATIENT
  Age: 43 Year
  Sex: Female

DRUGS (3)
  1. HUMATROPE [Suspect]
     Indication: BLOOD GROWTH HORMONE DECREASED
  2. HUMALOG [Suspect]
     Indication: DIABETES MELLITUS
  3. LANTUS [Concomitant]

REACTIONS (14)
  - AMNESIA [None]
  - BLOOD GLUCOSE FLUCTUATION [None]
  - BLOOD GROWTH HORMONE DECREASED [None]
  - FATIGUE [None]
  - GLYCOSYLATED HAEMOGLOBIN INCREASED [None]
  - HEAD INJURY [None]
  - HYPOGLYCAEMIA UNAWARENESS [None]
  - INJURY [None]
  - ROAD TRAFFIC ACCIDENT [None]
  - THEFT [None]
  - THERAPY NON-RESPONDER [None]
  - ULCER [None]
  - VOMITING [None]
  - WEIGHT LOSS POOR [None]
